FAERS Safety Report 20194054 (Version 1)
Quarter: 2021Q4

REPORT INFORMATION
  Report Type: Spontaneous
  Country: US (occurrence: None)
  Receive Date: 20211215
  Receipt Date: 20211215
  Transmission Date: 20220303
  Serious: Yes (Life-Threatening, Disabling)
  Sender: FDA-Public Use
  Company Number: None

PATIENT
  Age: 37 Year
  Sex: Female
  Weight: 144 kg

DRUGS (9)
  1. JARDIANCE [Suspect]
     Active Substance: EMPAGLIFLOZIN
     Indication: Type 2 diabetes mellitus
     Dosage: OTHER QUANTITY : 1 TABLET(S);?FREQUENCY : DAILY;?
     Route: 048
     Dates: start: 20211210, end: 20211211
  2. LISINOPRIL [Concomitant]
     Active Substance: LISINOPRIL
  3. METOPROLOL [Concomitant]
     Active Substance: METOPROLOL
  4. METFORMIN [Concomitant]
     Active Substance: METFORMIN HYDROCHLORIDE
  5. FLONASE [Concomitant]
     Active Substance: FLUTICASONE PROPIONATE
  6. ZINC [Concomitant]
     Active Substance: ZINC
  7. VITAMIN D3 [Concomitant]
     Active Substance: CHOLECALCIFEROL
  8. VITAMINS [Concomitant]
     Active Substance: VITAMINS
  9. INISITOL [Concomitant]

REACTIONS (10)
  - Malaise [None]
  - Feeling hot [None]
  - Cold sweat [None]
  - Hypoglycaemia [None]
  - Supraventricular tachycardia [None]
  - Electrocardiogram QT prolonged [None]
  - Electrocardiogram T wave abnormal [None]
  - Thrombosis [None]
  - Myocardial infarction [None]
  - Dehydration [None]

NARRATIVE: CASE EVENT DATE: 20211210
